FAERS Safety Report 8577996-X (Version None)
Quarter: 2012Q3

REPORT INFORMATION
  Report Type: 
  Country: None (occurrence: None)
  Receive Date: 20120725
  Receipt Date: 20120716
  Transmission Date: 20120928
  Serious: Yes (Hospitalization, Other)
  Sender: FDA-Public Use
  Company Number: AUR-APL-2012-03171

PATIENT
  Age: 72 Year
  Sex: Female

DRUGS (4)
  1. METFFORMIN HYDROCHLORIDE [Suspect]
     Indication: PRODUCT USED FOR UNKNOWN INDICATION
     Dosage: 2 GM/DAY
  2. DIGOXIN [Concomitant]
  3. WARFARIN SODIUM [Concomitant]
  4. SIMVASTATIN [Concomitant]

REACTIONS (19)
  - CHEST PAIN [None]
  - DEHYDRATION [None]
  - DEPRESSED LEVEL OF CONSCIOUSNESS [None]
  - LACTIC ACIDOSIS [None]
  - TROPONIN I INCREASED [None]
  - BLOOD CREATINE PHOSPHOKINASE MB INCREASED [None]
  - ANURIA [None]
  - BLOOD CREATININE INCREASED [None]
  - BLOOD GLUCOSE INCREASED [None]
  - ASPARTATE AMINOTRANSFERASE INCREASED [None]
  - GASTROINTESTINAL DISORDER [None]
  - CARDIOVASCULAR DISORDER [None]
  - HAEMODIALYSIS [None]
  - RESPIRATORY DISORDER [None]
  - DYSPNOEA [None]
  - ABDOMINAL PAIN [None]
  - SEPSIS [None]
  - AMYLASE INCREASED [None]
  - ORGAN FAILURE [None]
